FAERS Safety Report 7770549-2 (Version None)
Quarter: 2011Q3

REPORT INFORMATION
  Report Type: 
  Country: None (occurrence: None)
  Receive Date: 20110922
  Receipt Date: 20100803
  Transmission Date: 20111222
  Serious: No
  Sender: FDA-Public Use
  Company Number: US-ASTRAZENECA-2010SE36613

PATIENT
  Sex: Male

DRUGS (5)
  1. SEROQUEL [Suspect]
     Route: 048
  2. DIOVAN [Concomitant]
  3. BELLADONNA [Concomitant]
  4. ALPRAZOLAM [Concomitant]
  5. SEROQUEL [Suspect]
     Route: 048

REACTIONS (1)
  - DRUG INTOLERANCE [None]
